FAERS Safety Report 9519463 (Version 2)
Quarter: 2013Q4

REPORT INFORMATION
  Report Type: Spontaneous
  Country: US (occurrence: US)
  Receive Date: 20130912
  Receipt Date: 20131212
  Transmission Date: 20140711
  Serious: No
  Sender: FDA-Public Use
  Company Number: US-009507513-1309USA005299

PATIENT
  Sex: Female
  Weight: 54.42 kg

DRUGS (1)
  1. CORICIDIN HBP COUGH AND COLD [Suspect]
     Indication: SEASONAL ALLERGY
     Dosage: 1-2, DF, QD
     Route: 048
     Dates: start: 1960, end: 2013

REACTIONS (2)
  - Off label use [Unknown]
  - Product taste abnormal [Unknown]
